FAERS Safety Report 4349554-4 (Version None)
Quarter: 2004Q1

REPORT INFORMATION
  Report Type: 
  Country: None (occurrence: None)
  Receive Date: 20040329
  Receipt Date: 20031217
  Transmission Date: 20041129
  Serious: No
  Sender: FDA-Public Use
  Company Number: USA031254982

PATIENT
  Sex: Female

DRUGS (4)
  1. STRATTERA [Suspect]
     Indication: ATTENTION DEFICIT/HYPERACTIVITY DISORDER
     Dosage: 50 MG/DAY
     Dates: start: 20031101
  2. STRATTERA [Suspect]
     Indication: DEPRESSION
     Dosage: 50 MG/DAY
     Dates: start: 20031101
  3. LIPITOR [Concomitant]
  4. PROGESTERONE [Concomitant]

REACTIONS (2)
  - ALOPECIA [None]
  - TREMOR [None]
